FAERS Safety Report 6969915-4 (Version None)
Quarter: 2010Q3

REPORT INFORMATION
  Report Type: 
  Country: None (occurrence: None)
  Receive Date: 20100908
  Receipt Date: 20100901
  Transmission Date: 20110219
  Serious: Yes (Other)
  Sender: FDA-Public Use
  Company Number: US-RB-014767-10

PATIENT
  Age: 41 Year
  Sex: Male

DRUGS (1)
  1. SUBOXONE [Suspect]
     Indication: PRODUCT USED FOR UNKNOWN INDICATION
     Dosage: TOOK 1 1/2 A DAY-UNKNOWN EXACT DOSING, STATES NOW STOPPED SUBOXONE
     Route: 065

REACTIONS (6)
  - CHEST PAIN [None]
  - DRUG WITHDRAWAL SYNDROME [None]
  - DYSPNOEA [None]
  - FEELING JITTERY [None]
  - PAIN [None]
  - SUICIDAL IDEATION [None]
